FAERS Safety Report 16127161 (Version 1)
Quarter: 2019Q2

REPORT INFORMATION
  Report Type: Spontaneous
  Country: US (occurrence: US)
  Receive Date: 20190327
  Receipt Date: 20190327
  Transmission Date: 20190711
  Serious: Yes (Other)
  Sender: FDA-Public Use
  Company Number: None

PATIENT
  Age: 65 Year
  Sex: Female
  Weight: 146 kg

DRUGS (11)
  1. LEVOTHYROXINE. [Concomitant]
     Active Substance: LEVOTHYROXINE
  2. ONDANSETRON [Concomitant]
     Active Substance: ONDANSETRON
  3. CAPECITABINE. [Suspect]
     Active Substance: CAPECITABINE
     Indication: BREAST CANCER
     Route: 048
     Dates: start: 20181205, end: 20190327
  4. CITALOPRAM [Concomitant]
     Active Substance: CITALOPRAM HYDROBROMIDE
  5. SPIRONOLACTONE. [Concomitant]
     Active Substance: SPIRONOLACTONE
  6. FUROSEMIDE. [Concomitant]
     Active Substance: FUROSEMIDE
  7. NAPROXEN. [Concomitant]
     Active Substance: NAPROXEN
  8. ALLOPURINOL. [Concomitant]
     Active Substance: ALLOPURINOL
  9. ATORVASTATIN [Concomitant]
     Active Substance: ATORVASTATIN
  10. OLMESARTAN [Concomitant]
     Active Substance: OLMESARTAN
  11. TRAZODONE [Concomitant]
     Active Substance: TRAZODONE HYDROCHLORIDE

REACTIONS (1)
  - Disease progression [None]

NARRATIVE: CASE EVENT DATE: 20190327
